FAERS Safety Report 16880451 (Version 1)
Quarter: 2019Q4

REPORT INFORMATION
  Report Type: Report from Study
  Country: US (occurrence: US)
  Receive Date: 20191003
  Receipt Date: 20191003
  Transmission Date: 20200122
  Serious: Yes (Hospitalization)
  Sender: FDA-Public Use
  Company Number: US-BRISTOL-MYERS SQUIBB COMPANY-BMS-2019-093691

PATIENT
  Age: 55 Year
  Sex: Male
  Weight: 69.8 kg

DRUGS (2)
  1. NIVOLUMAB [Suspect]
     Active Substance: NIVOLUMAB
     Indication: RENAL CELL CARCINOMA
     Dosage: 240 MILLIGRAM, Q2WK
     Route: 042
     Dates: start: 20190509, end: 20190919
  2. CABOZANTINIB [Suspect]
     Active Substance: CABOZANTINIB
     Indication: RENAL CELL CARCINOMA
     Dosage: 40 MILLIGRAM, QD
     Route: 048
     Dates: start: 20190509, end: 20190922

REACTIONS (5)
  - Pyrexia [Unknown]
  - Diarrhoea [Unknown]
  - Nausea [Unknown]
  - Colitis [Unknown]
  - Dehydration [Unknown]

NARRATIVE: CASE EVENT DATE: 20190923
